FAERS Safety Report 9745387 (Version 1)
Quarter: 2013Q4

REPORT INFORMATION
  Report Type: Spontaneous
  Country: NO (occurrence: NO)
  Receive Date: 20131211
  Receipt Date: 20131211
  Transmission Date: 20140711
  Serious: Yes (Hospitalization)
  Sender: FDA-Public Use
  Company Number: PHHY2013NO142454

PATIENT
  Age: 41 Year
  Sex: Male

DRUGS (2)
  1. GILENYA [Suspect]
     Indication: RELAPSING-REMITTING MULTIPLE SCLEROSIS
     Dosage: 0.5 MG, QD
     Route: 048
     Dates: start: 20130523, end: 20130913
  2. LOSARTAN/HYDROCHLOORTHIAZIDE [Concomitant]
     Dosage: 1 DF = 50 MG LOSARTAN AND 12.5 MG HYDROCHLOROTHIAZIDE
     Route: 048
     Dates: start: 2011

REACTIONS (2)
  - Bundle branch block right [Recovered/Resolved]
  - Dyspnoea exertional [Recovered/Resolved]
